FAERS Safety Report 9170675 (Version 1)
Quarter: 2013Q1

REPORT INFORMATION
  Report Type: Spontaneous
  Country: US (occurrence: None)
  Receive Date: 20130311
  Receipt Date: 20130311
  Transmission Date: 20140127
  Serious: Yes (Hospitalization, Other)
  Sender: FDA-Public Use
  Company Number: 2013AM007358

PATIENT
  Age: 60 Year
  Sex: Female
  Weight: 134.8 kg

DRUGS (9)
  1. SYMLINPEN 120 (PRAMLINTIDE ACETATE) PEN-INJECTOR [Suspect]
     Indication: TYPE 1 DIABETES MELLITUS
     Dosage: 120 MCG;TID;SC
     Route: 058
     Dates: end: 201301
  2. SYMLIN (PRAMLINTIDE ACETATE) INJECTION (0.6 MG/ML) [Suspect]
     Indication: TYPE 1 DIABETES MELLITUS
     Dosage: 60 MCG: TID: SC
     Route: 058
     Dates: end: 2005
  3. NOVOLOG [Concomitant]
  4. VITORIN [Concomitant]
  5. PROZAC [Concomitant]
  6. METANX [Concomitant]
  7. ASA [Concomitant]
  8. LISINOPRIL [Concomitant]
  9. DIETARY SUPPLEMENT [Suspect]

REACTIONS (14)
  - Loss of consciousness [None]
  - Hypotension [None]
  - Blood glucose increased [None]
  - Blood pressure increased [None]
  - Feeling hot [None]
  - Haematochezia [None]
  - Colitis [None]
  - Blood iron decreased [None]
  - Weight increased [None]
  - Abdominal discomfort [None]
  - Nausea [None]
  - Decreased appetite [None]
  - Blood glucose decreased [None]
  - Syncope [None]
